FAERS Safety Report 7975103-5 (Version None)
Quarter: 2011Q4

REPORT INFORMATION
  Report Type: 
  Country: None (occurrence: None)
  Receive Date: 20111213
  Receipt Date: 20111028
  Transmission Date: 20120403
  Serious: No
  Sender: FDA-Public Use
  Company Number: US-AMGEN-USASP2011056001

PATIENT
  Age: 54 Year
  Sex: Female

DRUGS (1)
  1. ENBREL [Suspect]
     Indication: RHEUMATOID ARTHRITIS
     Dosage: 50 MG, QWK
     Dates: start: 20091014

REACTIONS (5)
  - SWELLING FACE [None]
  - RASH ERYTHEMATOUS [None]
  - EXFOLIATIVE RASH [None]
  - RASH VESICULAR [None]
  - SKIN EXFOLIATION [None]
